FAERS Safety Report 10207609 (Version 1)
Quarter: 2014Q2

REPORT INFORMATION
  Report Type: Spontaneous
  Country: DE (occurrence: DE)
  Receive Date: 20140530
  Receipt Date: 20140530
  Transmission Date: 20141212
  Serious: Yes (Hospitalization)
  Sender: FDA-Public Use
  Company Number: DE-ACTAVIS-2014-10944

PATIENT
  Age: 53 Year
  Sex: Female
  Weight: 78 kg

DRUGS (4)
  1. PACLITAXEL (UNKNOWN) [Suspect]
     Indication: PRODUCT USED FOR UNKNOWN INDICATION
     Dosage: 225MG/M2, UNK
     Route: 042
     Dates: start: 20140124
  2. PACLITAXEL (UNKNOWN) [Suspect]
     Dosage: 225MG/M2, UNK
     Route: 042
     Dates: start: 20140110
  3. PACLITAXEL (UNKNOWN) [Suspect]
     Dosage: 225MG/M2, UNK
     Route: 042
     Dates: start: 20131227
  4. TRASTUZUMAB [Concomitant]
     Indication: PRODUCT USED FOR UNKNOWN INDICATION
     Dosage: 2 MG/KG, 1/WEEK
     Route: 042
     Dates: start: 20140123

REACTIONS (4)
  - Tachycardia [Recovered/Resolved]
  - Pyrexia [Recovered/Resolved]
  - Interstitial lung disease [Recovered/Resolved]
  - Dyspnoea [Recovered/Resolved]
